FAERS Safety Report 11695614 (Version 10)
Quarter: 2018Q2

REPORT INFORMATION
  Report Type: Spontaneous
  Country: US (occurrence: US)
  Receive Date: 20151104
  Receipt Date: 20180605
  Transmission Date: 20180711
  Serious: No
  Sender: FDA-Public Use
  Company Number: PHEH2015US022338

PATIENT
  Sex: Female
  Weight: 70.75 kg

DRUGS (3)
  1. ONDANSETRONE RANBAXY [Suspect]
     Active Substance: ONDANSETRON HYDROCHLORIDE
     Indication: VOMITING IN PREGNANCY
     Dosage: 8 MG, UNK
     Route: 065
     Dates: start: 20140506, end: 201407
  2. ZOFRAN [Suspect]
     Active Substance: ONDANSETRON HYDROCHLORIDE
     Indication: VOMITING IN PREGNANCY
     Dosage: 1 DF, BID
     Route: 048
     Dates: start: 20140506, end: 20150123
  3. ONDANSETRON HYDROCHLORIDE. [Suspect]
     Active Substance: ONDANSETRON HYDROCHLORIDE
     Indication: PRODUCT USED FOR UNKNOWN INDICATION
     Route: 048

REACTIONS (12)
  - Vaginal haemorrhage [Unknown]
  - Anxiety [Unknown]
  - Cervicitis [Unknown]
  - Product use in unapproved indication [Unknown]
  - Scar [Unknown]
  - Vaginal discharge [Unknown]
  - Maternal exposure during pregnancy [Unknown]
  - Injury [Unknown]
  - Pain [Unknown]
  - Anhedonia [Unknown]
  - Asthma [Unknown]
  - Emotional distress [Unknown]
